FAERS Safety Report 7288022-7 (Version None)
Quarter: 2011Q1

REPORT INFORMATION
  Report Type: 
  Country: None (occurrence: None)
  Receive Date: 20110211
  Receipt Date: 20110131
  Transmission Date: 20110831
  Serious: Yes (Hospitalization)
  Sender: FDA-Public Use
  Company Number: PHHY2011FR08457

PATIENT
  Sex: Female

DRUGS (8)
  1. ACTONEL [Concomitant]
     Dosage: 1 DF, QW
  2. COTAREG [Suspect]
     Dosage: 1 DF, QD
  3. ACICLOVIR [Suspect]
     Dosage: 650 MG, TID
     Dates: start: 20101202, end: 20101206
  4. ACICLOVIR [Suspect]
     Dosage: UNK
  5. AMOXICILLIN [Suspect]
     Dosage: 12 G, QD
     Dates: start: 20101202, end: 20101204
  6. CEFTRIAXONE [Suspect]
     Dosage: 2 G, TID
     Dates: start: 20101203
  7. ARIMIDEX [Concomitant]
     Dosage: 1 DF, QD
  8. GENTAMICIN [Concomitant]
     Dosage: UNK

REACTIONS (9)
  - RENAL FAILURE ACUTE [None]
  - BLOOD CREATININE INCREASED [None]
  - APHASIA [None]
  - CREATININE RENAL CLEARANCE DECREASED [None]
  - MENINGEAL DISORDER [None]
  - BLOOD UREA INCREASED [None]
  - DISORIENTATION [None]
  - CSF PROTEIN INCREASED [None]
  - CEREBELLAR SYNDROME [None]
